FAERS Safety Report 6807381-X (Version None)
Quarter: 2010Q2

REPORT INFORMATION
  Report Type: 
  Country: None (occurrence: None)
  Receive Date: 20100629
  Receipt Date: 20081201
  Transmission Date: 20101027
  Serious: Yes (Other)
  Sender: FDA-Public Use
  Company Number: US-PFIZER INC-2008063948

PATIENT
  Sex: Male
  Weight: 69.388 kg

DRUGS (2)
  1. ZYVOX [Suspect]
     Dosage: 600 MG, UNK
     Route: 048
     Dates: start: 20080707, end: 20080728
  2. LEVAQUIN [Suspect]
     Indication: INFECTION
     Dosage: 750 MG, UNK
     Route: 048
     Dates: start: 20080707, end: 20080731

REACTIONS (1)
  - BONE MARROW FAILURE [None]
